FAERS Safety Report 17566999 (Version 1)
Quarter: 2020Q1

REPORT INFORMATION
  Report Type: Report from Study
  Country: DE (occurrence: DE)
  Receive Date: 20200320
  Receipt Date: 20200320
  Transmission Date: 20200409
  Serious: Yes (Hospitalization)
  Sender: FDA-Public Use
  Company Number: DE-JNJFOC-20200319631

PATIENT
  Age: 65 Year
  Sex: Female

DRUGS (2)
  1. SIMPONI [Suspect]
     Active Substance: GOLIMUMAB
     Route: 058
     Dates: start: 201912
  2. SIMPONI [Suspect]
     Active Substance: GOLIMUMAB
     Indication: PSORIATIC ARTHROPATHY
     Route: 058
     Dates: start: 201911

REACTIONS (6)
  - Dyspnoea [Unknown]
  - Salivary gland enlargement [Unknown]
  - Psoriasis [Unknown]
  - Aptyalism [Unknown]
  - Pustule [Unknown]
  - Bronchitis [Unknown]

NARRATIVE: CASE EVENT DATE: 202001
